FAERS Safety Report 12974457 (Version 2)
Quarter: 2017Q2

REPORT INFORMATION
  Report Type: Spontaneous
  Country: FR (occurrence: FR)
  Receive Date: 20161125
  Receipt Date: 20170412
  Transmission Date: 20170830
  Serious: Yes (Hospitalization)
  Sender: FDA-Public Use
  Company Number: FR-ROCHE-1859500

PATIENT
  Age: 73 Year
  Sex: Male

DRUGS (10)
  1. ZELBORAF [Suspect]
     Active Substance: VEMURAFENIB
     Indication: METASTATIC MALIGNANT MELANOMA
     Route: 048
     Dates: start: 20161006, end: 20161026
  2. EUPRESSYL [Concomitant]
     Active Substance: URAPIDIL
     Dosage: LONG TERM TREATMENT
     Route: 065
  3. ZELBORAF [Suspect]
     Active Substance: VEMURAFENIB
     Route: 048
     Dates: start: 20161102, end: 20170119
  4. LOXEN (FRANCE) [Concomitant]
     Active Substance: NICARDIPINE HYDROCHLORIDE
     Dosage: LONG TERM TREATMENT
     Route: 065
  5. ZOPICLONE [Concomitant]
     Active Substance: ZOPICLONE
     Dosage: LONG TERM TREATMENT
     Route: 048
  6. JOSIR [Concomitant]
     Active Substance: TAMSULOSIN
     Dosage: LONG TERM TREATMENT
     Route: 048
  7. PAROXETINE. [Concomitant]
     Active Substance: PAROXETINE
     Dosage: LONG TERM TREATMENT
     Route: 048
  8. VALSARTAN. [Concomitant]
     Active Substance: VALSARTAN
     Dosage: LONG TERM TREATMENT
     Route: 048
  9. COTELLIC [Suspect]
     Active Substance: COBIMETINIB
     Indication: METASTATIC MALIGNANT MELANOMA
     Route: 048
     Dates: start: 20161006, end: 20161026
  10. COTELLIC [Suspect]
     Active Substance: COBIMETINIB
     Route: 048
     Dates: start: 20161102, end: 20170119

REACTIONS (2)
  - Acute kidney injury [Recovering/Resolving]
  - Pemphigoid [Recovered/Resolved]

NARRATIVE: CASE EVENT DATE: 20161015
